FAERS Safety Report 6711949-9 (Version None)
Quarter: 2010Q2

REPORT INFORMATION
  Report Type: 
  Country: None (occurrence: None)
  Receive Date: 20100505
  Receipt Date: 20100429
  Transmission Date: 20101027
  Serious: Yes (Hospitalization)
  Sender: FDA-Public Use
  Company Number: BR-GENZYME-FABR-1001352

PATIENT
  Sex: Female
  Weight: 55 kg

DRUGS (9)
  1. FABRAZYME [Suspect]
     Indication: FABRY'S DISEASE
     Dosage: 0.5 MG, Q2W
     Route: 042
     Dates: start: 20100413
  2. FABRAZYME [Suspect]
     Dosage: UNK MG, Q2W
     Route: 042
     Dates: start: 20080909
  3. PARACETAMOL [Concomitant]
     Indication: PREMEDICATION
     Dosage: 500 MG, Q2W
     Route: 048
  4. LORATADINE [Concomitant]
     Indication: PREMEDICATION
     Dosage: 20 MG, Q2W
     Route: 048
  5. DILTIAZEM HCL [Concomitant]
     Indication: DRUG USE FOR UNKNOWN INDICATION
     Dosage: 60 MG, TID
  6. ENALAPRIL MALEATE [Concomitant]
     Indication: DRUG USE FOR UNKNOWN INDICATION
     Dosage: 20 MG, BID
  7. SIMVASTATIN [Concomitant]
     Indication: DRUG USE FOR UNKNOWN INDICATION
     Dosage: 20 MG, QD
  8. ACETYLSALICYLIC ACID [Concomitant]
     Indication: DRUG USE FOR UNKNOWN INDICATION
     Dosage: 100 MG, QD
  9. HYDROCHLOROTHIAZIDE [Concomitant]
     Indication: DRUG USE FOR UNKNOWN INDICATION
     Dosage: 25 MG, QD

REACTIONS (1)
  - TRANSIENT ISCHAEMIC ATTACK [None]
